FAERS Safety Report 4975874-6 (Version None)
Quarter: 2006Q2

REPORT INFORMATION
  Report Type: 
  Country: None (occurrence: None)
  Receive Date: 20060411
  Receipt Date: 20060329
  Transmission Date: 20061013
  Serious: Yes (Other)
  Sender: FDA-Public Use
  Company Number: 2006045240

PATIENT
  Sex: Female

DRUGS (1)
  1. BEXTRA [Suspect]
     Indication: PAIN
     Dates: start: 20021001, end: 20040201

REACTIONS (3)
  - ANAPHYLACTIC REACTION [None]
  - OCULAR VASCULAR DISORDER [None]
  - SKIN DISORDER [None]
